FAERS Safety Report 4329619-3 (Version None)
Quarter: 2004Q2

REPORT INFORMATION
  Report Type: 
  Country: None (occurrence: None)
  Receive Date: 20040401
  Receipt Date: 20040325
  Transmission Date: 20050107
  Serious: Yes (Life-Threatening)
  Sender: FDA-Public Use
  Company Number: IT-ROCHE-362822

PATIENT
  Age: 69 Year
  Sex: Male

DRUGS (4)
  1. ROCEPHIN [Suspect]
     Indication: PNEUMONITIS
     Route: 030
     Dates: start: 20040223, end: 20040225
  2. MOXIFLOXACIN [Suspect]
     Indication: PNEUMONITIS
     Dosage: TRADE NAME REPORTED AS OCTEGRA.
     Route: 048
     Dates: start: 20040220, end: 20040226
  3. CORDARONE [Concomitant]
     Route: 048
     Dates: start: 20040126
  4. CARDIOASPIRIN [Concomitant]
     Route: 048
     Dates: start: 20030215

REACTIONS (4)
  - ARTHRALGIA [None]
  - GRAVITATIONAL OEDEMA [None]
  - OEDEMA [None]
  - PURPURA [None]
